FAERS Safety Report 6041912-5 (Version None)
Quarter: 2009Q1

REPORT INFORMATION
  Report Type: 
  Country: None (occurrence: None)
  Receive Date: 20090116
  Receipt Date: 20080502
  Transmission Date: 20090719
  Serious: No
  Sender: FDA-Public Use
  Company Number: US-BAYER-200812128BCC

PATIENT
  Age: 70 Year
  Sex: Male
  Weight: 86 kg

DRUGS (3)
  1. ALEVE [Suspect]
     Indication: ARTHRITIS
     Dosage: UNIT DOSE: 220 MG
     Route: 048
  2. IBUPROFEN [Concomitant]
     Route: 048
  3. BAYER EXTRA STRENGTH [Concomitant]
     Route: 048

REACTIONS (1)
  - ARTHRALGIA [None]
